FAERS Safety Report 7762800-X (Version None)
Quarter: 2011Q3

REPORT INFORMATION
  Report Type: 
  Country: None (occurrence: None)
  Receive Date: 20110920
  Receipt Date: 20110914
  Transmission Date: 20111222
  Serious: Yes (Other)
  Sender: FDA-Public Use
  Company Number: JP-PFIZER INC-2011218410

PATIENT
  Age: 76 Year
  Sex: Male

DRUGS (2)
  1. MIGLITOL [Suspect]
     Indication: PRODUCT USED FOR UNKNOWN INDICATION
     Dosage: 150 MG, DAILY
     Route: 048
     Dates: start: 20110322
  2. MIGLITOL [Suspect]
     Dosage: 225 MG, DAILY
     Route: 048

REACTIONS (1)
  - HYPOGLYCAEMIA [None]
